FAERS Safety Report 17524668 (Version 5)
Quarter: 2025Q3

REPORT INFORMATION
  Report Type: Spontaneous
  Country: EU (occurrence: EU)
  Receive Date: 20200310
  Receipt Date: 20250702
  Transmission Date: 20251021
  Serious: Yes (Hospitalization, Other)
  Sender: MYLAN
  Company Number: EU-ADIENNEP-2020AD000099

PATIENT
  Age: 6 Month
  Sex: Female

DRUGS (8)
  1. PREDNISONE [Suspect]
     Active Substance: PREDNISONE
     Indication: Prophylaxis against graft versus host disease
     Dosage: 0.4 MILLIGRAM/KILOGRAM, QD (1 DOSAGE 0.4 MG/KG DAILY)
  2. FLUDARABINE [Suspect]
     Active Substance: FLUDARABINE PHOSPHATE
     Indication: Allogenic stem cell transplantation
     Dosage: 50 MILLIGRAM/SQ. METER, TID (50 MG/M2, TID (3/DAY))
  3. BUSULFAN [Suspect]
     Active Substance: BUSULFAN
     Indication: Allogenic stem cell transplantation
     Dosage: 3.2 MILLIGRAM/KILOGRAM, TID (3.2 MG/KG, TID (3/DAY))
  4. CYCLOSPORINE [Suspect]
     Active Substance: CYCLOSPORINE
     Indication: Prophylaxis against graft versus host disease
  5. CYCLOPHOSPHAMIDE [Suspect]
     Active Substance: CYCLOPHOSPHAMIDE
     Indication: Prophylaxis against graft versus host disease
     Dosage: 50 MILLIGRAM/KILOGRAM, BID (2 DOSAGES 50 MG/KG DAILY)
  6. CYCLOPHOSPHAMIDE [Suspect]
     Active Substance: CYCLOPHOSPHAMIDE
     Dosage: 100 MILLIGRAM/KILOGRAM, BID, 50 MG/KG, BID (2/DAY)
  7. THIOTEPA [Suspect]
     Active Substance: THIOTEPA
     Indication: Allogenic stem cell transplantation
     Dosage: 10 MILLIGRAM/KILOGRAM, QD 2 DOSAGES 5 MG/KG DAILY
  8. THIOTEPA [Suspect]
     Active Substance: THIOTEPA
     Dosage: 5 MILLIGRAM/KILOGRAM, BID,  MG/KG, BID (2/DAY)

REACTIONS (4)
  - Chronic graft versus host disease [Recovered/Resolved]
  - Pseudomonal sepsis [Unknown]
  - Pneumonia [Unknown]
  - Polymyositis [Recovered/Resolved]
